FAERS Safety Report 8445256-3 (Version None)
Quarter: 2012Q2

REPORT INFORMATION
  Report Type: 
  Country: None (occurrence: None)
  Receive Date: 20120618
  Receipt Date: 20120611
  Transmission Date: 20120825
  Serious: Yes (Other)
  Sender: FDA-Public Use
  Company Number: US-JNJFOC-20120411852

PATIENT
  Sex: Female
  Weight: 91.63 kg

DRUGS (7)
  1. TRIAMTERENE AND HYDROCHLOROTHIAZIDE [Concomitant]
     Indication: DIURETIC THERAPY
  2. AMLODIPINE [Concomitant]
     Indication: HYPERTENSION
  3. POTASSIUM CHLORIDE [Concomitant]
     Indication: ELECTROLYTE SUBSTITUTION THERAPY
  4. SIMVASTATIN [Concomitant]
     Indication: HYPERCHOLESTEROLAEMIA
  5. XARELTO [Suspect]
     Indication: ATRIAL FIBRILLATION
     Route: 048
     Dates: start: 20120412
  6. THYROID THERAPY [Concomitant]
     Indication: THYROID HORMONE REPLACEMENT THERAPY
  7. ATENOLOL [Concomitant]
     Indication: HYPERTENSION

REACTIONS (6)
  - BLOOD POTASSIUM DECREASED [None]
  - DIZZINESS [None]
  - ASTHENIA [None]
  - TREMOR [None]
  - MALAISE [None]
  - FAECAL INCONTINENCE [None]
